FAERS Safety Report 24384705 (Version 1)
Quarter: 2024Q4

REPORT INFORMATION
  Report Type: Spontaneous
  Country: US (occurrence: US)
  Receive Date: 20241001
  Receipt Date: 20241001
  Transmission Date: 20250114
  Serious: Yes (Other)
  Sender: BAXTER
  Company Number: US-BAXTER-2024BAX025050

PATIENT
  Sex: Female
  Weight: 59.6 kg

DRUGS (10)
  1. CYCLOPHOSPHAMIDE [Suspect]
     Active Substance: CYCLOPHOSPHAMIDE
     Indication: Breast cancer metastatic
     Dosage: UNK, THERAPY DATE: JUL-2010 TO SEP-2010 (4 WEEKLY TREATMENTS)
     Route: 065
  2. IBRANCE [Suspect]
     Active Substance: PALBOCICLIB
     Indication: Breast cancer metastatic
     Dosage: 100 MG ORAL TABLET: 100 MG, 1 TAB(S), ORAL,DAILY, DAILY FOR 21 DAYS, THEN OFF FOR 7 DAYS, 21 TAB(S),
     Route: 065
     Dates: start: 20230918
  3. IBRANCE [Suspect]
     Active Substance: PALBOCICLIB
     Indication: Iron deficiency anaemia
  4. PALBOCICLIB [Suspect]
     Active Substance: PALBOCICLIB
     Indication: Breast cancer metastatic
     Dosage: 120 MG, Q DAY DAYS 1-21 OF Q 28 DAY CYCLE TO HELP ENSURE TOLERABILITY ABILITY, REDUCED DOSE
     Route: 048
  5. AROMASIN [Suspect]
     Active Substance: EXEMESTANE
     Indication: Breast cancer metastatic
     Dosage: UNK, THERAPY DATE: NOV-2012 TO NOV-2013
     Route: 065
  6. AROMASIN [Suspect]
     Active Substance: EXEMESTANE
     Dosage: UNK, THERAPY DATE: JUNE 2014 TO FEB 2015
     Route: 065
  7. ADRIAMYCIN [Suspect]
     Active Substance: DOXORUBICIN HYDROCHLORIDE
     Indication: Breast cancer metastatic
     Dosage: UNK, THERAPY DATE: JUL-2010 TO SEP-2010 (4 WEEKLY TREATMENTS)
     Route: 065
  8. FASLODEX [Suspect]
     Active Substance: FULVESTRANT
     Indication: Breast cancer metastatic
     Dosage: 500 MG, IM, ONCE, LOADING DOSE ON DAYS 1, 15, AND 29, THEN ONCE MONTHLY
     Route: 065
  9. FASLODEX [Suspect]
     Active Substance: FULVESTRANT
     Indication: Iron deficiency anaemia
     Dosage: UNK
     Route: 065
     Dates: start: 20230918
  10. ABRAXANE [Suspect]
     Active Substance: PACLITAXEL
     Indication: Breast cancer metastatic
     Dosage: UNK, NOV-2010 TO DEC-2010 (TOTAL OF 12 WEEKLY TAXANE TREATMENTS)
     Route: 065

REACTIONS (11)
  - Asthma [Unknown]
  - Respiratory failure [Unknown]
  - Spinal deformity [Unknown]
  - Night sweats [Unknown]
  - Insomnia [Unknown]
  - Hypotension [Unknown]
  - Diarrhoea [Unknown]
  - Alopecia [Unknown]
  - Fatigue [Unknown]
  - Dermatitis [Unknown]
  - Rash [Unknown]
